FAERS Safety Report 8450675-5 (Version None)
Quarter: 2012Q2

REPORT INFORMATION
  Report Type: 
  Country: None (occurrence: None)
  Receive Date: 20120620
  Receipt Date: 20120612
  Transmission Date: 20120825
  Serious: Yes (Other)
  Sender: FDA-Public Use
  Company Number: -CUBIST-2012S1000511

PATIENT
  Age: 45 Year
  Sex: Male

DRUGS (3)
  1. CEFTRIAXONE [Concomitant]
     Indication: STAPHYLOCOCCUS TEST POSITIVE
     Dosage: DOSE UNIT:U
     Route: 042
  2. AZITHROMYCIN [Concomitant]
     Indication: STAPHYLOCOCCUS TEST POSITIVE
     Dosage: DOSE UNIT:U
     Route: 042
  3. CUBICIN [Suspect]
     Indication: STAPHYLOCOCCUS TEST POSITIVE
     Dosage: DOSE UNIT:U
     Route: 042

REACTIONS (3)
  - PULMONARY INFARCTION [None]
  - EMBOLISM [None]
  - PNEUMONIA [None]
